FAERS Safety Report 8004644-X (Version None)
Quarter: 2011Q4

REPORT INFORMATION
  Report Type: 
  Country: None (occurrence: None)
  Receive Date: 20111223
  Receipt Date: 20111214
  Transmission Date: 20120403
  Serious: Yes (Hospitalization)
  Sender: FDA-Public Use
  Company Number: US-JNJFOC-20111108157

PATIENT
  Sex: Female

DRUGS (5)
  1. REMICADE [Suspect]
     Indication: PSORIASIS
     Route: 042
     Dates: start: 20070321, end: 20111201
  2. METOPROLOL TARTRATE [Concomitant]
     Indication: HYPERTENSION
  3. METFORMIN HCL [Concomitant]
     Indication: TYPE 2 DIABETES MELLITUS
  4. LOVASTATIN [Concomitant]
     Indication: BLOOD CHOLESTEROL
  5. PAXIL [Concomitant]
     Indication: DEPRESSION

REACTIONS (1)
  - PANCREATIC CARCINOMA STAGE IV [None]
